FAERS Safety Report 24284410 (Version 1)
Quarter: 2024Q3

REPORT INFORMATION
  Report Type: Spontaneous
  Country: JP (occurrence: JP)
  Receive Date: 20240905
  Receipt Date: 20240905
  Transmission Date: 20241017
  Serious: No
  Sender: ALKEM
  Company Number: JP-ALKEM LABORATORIES LIMITED-JP-ALKEM-2024-13208

PATIENT
  Age: 40 Year
  Sex: Female

DRUGS (7)
  1. VANCOMYCIN [Suspect]
     Active Substance: VANCOMYCIN
     Indication: Staphylococcal bacteraemia
     Dosage: UNK
     Route: 065
  2. VANCOMYCIN [Suspect]
     Active Substance: VANCOMYCIN
     Dosage: 1.5 GRAM, BID
     Route: 065
  3. EDOXABAN [Concomitant]
     Active Substance: EDOXABAN
     Indication: Ovarian vein thrombosis
     Dosage: 30 MG/DAY
     Route: 065
  4. HEPARIN [Concomitant]
     Active Substance: HEPARIN SODIUM
     Indication: Ovarian vein thrombosis
     Dosage: 25000 UNITS
     Route: 065
  5. RIFAMPIN [Concomitant]
     Active Substance: RIFAMPIN
     Indication: Staphylococcal bacteraemia
     Dosage: 300 MILLIGRAM, QD
  6. MONTEPLASE [Concomitant]
     Active Substance: MONTEPLASE
     Indication: Ovarian vein thrombosis
     Dosage: 100000 UNITS OVER 5 HOURS
     Route: 065
  7. MONTEPLASE [Concomitant]
     Active Substance: MONTEPLASE
     Dosage: 300000 UNITS OVER 4 HOURS
     Route: 065

REACTIONS (1)
  - Therapy partial responder [Unknown]
